FAERS Safety Report 22250422 (Version 1)
Quarter: 2023Q2

REPORT INFORMATION
  Report Type: Spontaneous
  Country: CA (occurrence: CA)
  Receive Date: 20230425
  Receipt Date: 20230425
  Transmission Date: 20230722
  Serious: Yes (Death)
  Sender: FDA-Public Use
  Company Number: CA-PFIZER INC-202300165246

PATIENT
  Age: 57 Year
  Sex: Male

DRUGS (3)
  1. TRIAZOLAM [Interacting]
     Active Substance: TRIAZOLAM
     Dosage: UNK
  2. DOXEPIN HCL [Interacting]
     Active Substance: DOXEPIN HYDROCHLORIDE
     Dosage: UNK
  3. CHLORDIAZEPOXIDE [Interacting]
     Active Substance: CHLORDIAZEPOXIDE
     Dosage: UNK

REACTIONS (3)
  - Completed suicide [Fatal]
  - Drug interaction [Fatal]
  - Toxicity to various agents [Fatal]
